FAERS Safety Report 7176661-3 (Version None)
Quarter: 2010Q4

REPORT INFORMATION
  Report Type: 
  Country: None (occurrence: None)
  Receive Date: 20101215
  Receipt Date: 20101215
  Transmission Date: 20110411
  Serious: Yes (Death)
  Sender: FDA-Public Use
  Company Number: None

PATIENT
  Age: 77 Year
  Sex: Male

DRUGS (1)
  1. NEULASTA [Suspect]
     Dosage: 6MG Q21D SQ
     Route: 058
     Dates: start: 20090811, end: 20101101

REACTIONS (1)
  - DEATH [None]
